FAERS Safety Report 5141763-X (Version None)
Quarter: 2006Q4

REPORT INFORMATION
  Report Type: 
  Country: None (occurrence: None)
  Receive Date: 20061027
  Receipt Date: 20061005
  Transmission Date: 20070319
  Serious: Yes (Death, Hospitalization)
  Sender: FDA-Public Use
  Company Number: HU200606004976

PATIENT
  Age: 50 Year
  Sex: Female

DRUGS (1)
  1. DULOXETINE HYDROCHLORIDE (DULOXETINE HYDROCHLORIDE) CAPSULE [Suspect]
     Indication: MAJOR DEPRESSION
     Dosage: 30 MG, DAILY (1/D), ORAL
     Route: 048
     Dates: start: 20060620, end: 20060621

REACTIONS (9)
  - BRADYCARDIA [None]
  - BRAIN STEM SYNDROME [None]
  - COMPLETED SUICIDE [None]
  - HYPOTONIA [None]
  - INTENTIONAL OVERDOSE [None]
  - LOCKED-IN SYNDROME [None]
  - MIOSIS [None]
  - SALIVARY HYPERSECRETION [None]
  - TREMOR [None]
